FAERS Safety Report 16341915 (Version 1)
Quarter: 2019Q2

REPORT INFORMATION
  Report Type: Spontaneous
  Country: DE (occurrence: DE)
  Receive Date: 20190522
  Receipt Date: 20190522
  Transmission Date: 20190711
  Serious: Yes (Death, Life-Threatening)
  Sender: FDA-Public Use
  Company Number: DE-BAYER-199906360GDS

PATIENT
  Age: 45 Year
  Sex: Male
  Weight: 88 kg

DRUGS (58)
  1. NEUPOGEN [Suspect]
     Active Substance: FILGRASTIM
     Indication: COMPLICATIONS OF BONE MARROW TRANSPLANT
     Dosage: 480 ?G, QD
     Route: 042
     Dates: start: 19981127, end: 19981130
  2. DOPAMINE HYDROCHLORIDE. [Suspect]
     Active Substance: DOPAMINE HYDROCHLORIDE
     Indication: HYPOTENSION
     Dosage: 1.2 ML
     Route: 042
     Dates: start: 19981119, end: 19990101
  3. NOVALGIN (METAMIZOLE SODIUM) [Suspect]
     Active Substance: METAMIZOLE SODIUM
     Indication: PAIN
     Dosage: 1 G, QD, IRREGULAR
     Route: 042
     Dates: start: 19981111
  4. DIFLUCAN [Suspect]
     Active Substance: FLUCONAZOLE
     Indication: ANTIFUNGAL PROPHYLAXIS
     Dosage: 200 MG, QD
     Route: 042
     Dates: end: 19981119
  5. SODIUM CHLORIDE. [Concomitant]
     Active Substance: SODIUM CHLORIDE
     Indication: HYPONATRAEMIA
     Dosage: UNK
     Route: 042
     Dates: start: 19981119, end: 19981121
  6. POTASSIUM CHLORIDE. [Concomitant]
     Active Substance: POTASSIUM CHLORIDE
     Indication: HYPOKALAEMIA
     Dosage: INTERMITTENT THERAPY
     Route: 042
  7. DOLANTIN [Concomitant]
     Active Substance: MEPERIDINE
     Indication: SEDATION
     Dosage: 50 MG, INTERMITTENT THERAPY
     Route: 042
     Dates: start: 19981111, end: 19981121
  8. AQUAPHOR (XIPAMIDE) [Concomitant]
     Active Substance: XIPAMIDE
     Indication: OEDEMA
     Dosage: 20 MG
     Route: 048
     Dates: start: 19981120, end: 19981120
  9. PEPDUL [Concomitant]
     Active Substance: FAMOTIDINE
     Indication: PROPHYLAXIS
     Dosage: 40 MG
     Route: 042
     Dates: end: 19981110
  10. METHOTREXATE. [Concomitant]
     Active Substance: METHOTREXATE
     Indication: BONE MARROW TRANSPLANT
     Dosage: 10 MG
     Route: 042
  11. SODIUM BICARBONATE. [Concomitant]
     Active Substance: SODIUM BICARBONATE
     Indication: ACIDOSIS
     Dosage: INTERMITTENT THERAPY
     Dates: start: 19981201, end: 19981206
  12. ALPROSTADIL. [Suspect]
     Active Substance: ALPROSTADIL
     Dosage: UNK
     Dates: start: 19981111, end: 19981119
  13. FORTUM [CEFTAZIDIME] [Suspect]
     Active Substance: CEFTAZIDIME
     Indication: INFECTION
     Dosage: 2 MG, QD
     Route: 042
     Dates: start: 19981111, end: 19981205
  14. TOBRAMYCIN. [Suspect]
     Active Substance: TOBRAMYCIN
     Indication: INFECTION
     Dosage: 520 MG, QD
     Route: 042
     Dates: start: 19981114, end: 19981121
  15. LASIX [Suspect]
     Active Substance: FUROSEMIDE
     Dosage: UNK
  16. PENTAGLOBIN [Concomitant]
     Active Substance: HUMAN IMMUNOGLOBULIN G
     Indication: BONE MARROW TRANSPLANT
     Dosage: 20 GRAM
     Dates: start: 19981120, end: 19981120
  17. ACICLOVIR [Concomitant]
     Active Substance: ACYCLOVIR
     Indication: PROPHYLAXIS
     Dosage: 500 MG
     Route: 042
  18. VITAMIN B COMPLEX [Concomitant]
     Active Substance: CYANOCOBALAMIN\DEXPANTHENOL\NIACINAMIDE\PYRIDOXINE HYDROCHLORIDE\RIBOFLAVIN 5^-PHOSPHATE SODIUM\THIAMINE HYDROCHLORIDE\VITAMIN B COMPLEX
     Indication: PARENTERAL NUTRITION
     Route: 042
  19. ANTRA [OMEPRAZOLE] [Concomitant]
     Active Substance: OMEPRAZOLE
     Indication: PROPHYLAXIS
     Dosage: 20 MG, QD
     Route: 042
  20. INZOLEN [Concomitant]
     Active Substance: MAGNESIUM ASPARTATE\POTASSIUM ASPARTATE
     Indication: ELECTROLYTE SUBSTITUTION THERAPY
     Route: 042
  21. CALCIUM [Concomitant]
     Active Substance: CALCIUM
     Indication: BLOOD CALCIUM DECREASED
     Route: 042
  22. MORPHIN [MORPHINE SULFATE] [Concomitant]
     Indication: SEDATION
     Dosage: 0.5 MG
     Route: 042
     Dates: start: 19981111, end: 19981123
  23. TAVEGIL [CLEMASTINE] [Concomitant]
     Active Substance: CLEMASTINE
     Indication: GRAFT VERSUS HOST DISEASE
     Route: 042
  24. ACTRAPID [Concomitant]
     Active Substance: INSULIN HUMAN
  25. CIPROBAY [CIPROFLOXACIN HYDROCHLORIDE] [Suspect]
     Active Substance: CIPROFLOXACIN
     Indication: CYSTITIS
     Dosage: 400 MG, QD
     Route: 042
     Dates: start: 19981130, end: 19981208
  26. PREDNISOLONE. [Suspect]
     Active Substance: PREDNISOLONE
     Indication: CONJUNCTIVITIS
     Dosage: UNK
     Route: 061
     Dates: start: 19981204, end: 19990101
  27. GENTAMYCIN [GENTAMICIN SULFATE] [Suspect]
     Active Substance: GENTAMICIN SULFATE
     Indication: CONJUNCTIVITIS
     Dosage: UNK
     Route: 047
     Dates: start: 19981129, end: 19981129
  28. SOLU DECORTIN [Concomitant]
     Active Substance: PREDNISOLONE SODIUM SUCCINATE
     Indication: GRAFT VERSUS HOST DISEASE
     Dosage: 25 MG
     Route: 042
  29. PENTAGLOBIN [Concomitant]
     Active Substance: HUMAN IMMUNOGLOBULIN G
     Indication: BONE MARROW TRANSPLANT
     Dosage: 20 GRAM
     Dates: start: 19981119, end: 19981119
  30. DIPEPTAMIN [Concomitant]
     Indication: PARENTERAL NUTRITION
     Dosage: INTERMITTENT THERAPY
     Route: 042
  31. PROSTAVASIN [Concomitant]
     Active Substance: ALPROSTADIL ALFADEX
     Indication: CARDIOVASCULAR DISORDER
     Dosage: 500 MG
     Route: 042
  32. BACTRIM [Suspect]
     Active Substance: SULFAMETHOXAZOLE\TRIMETHOPRIM
     Indication: INFECTION
     Dosage: 160 MG
     Route: 042
     Dates: start: 19981113, end: 19981206
  33. GLUCOSE [Concomitant]
     Active Substance: DEXTROSE
     Indication: PARENTERAL NUTRITION
     Dosage: 10-,20, OR 70% SOLUTION
     Route: 042
     Dates: start: 19981115, end: 19981207
  34. FUROSEMIDE. [Suspect]
     Active Substance: FUROSEMIDE
     Dosage: 10 MG, QD
     Route: 042
     Dates: start: 19981013
  35. URBASON [METHYLPREDNISOLONE SODIUM SUCCINATE] [Suspect]
     Active Substance: METHYLPREDNISOLONE SODIUM SUCCINATE
     Indication: GRAFT VERSUS HOST DISEASE
     Dosage: 64 MG
     Route: 042
     Dates: start: 19981121, end: 19990101
  36. CARBOHYDRATES NOS;PROTEINS NOS [Concomitant]
     Indication: PARENTERAL NUTRITION
     Dosage: INTERMITTENT THERAPY
     Route: 042
  37. AMPHO-MORONAL [Concomitant]
     Active Substance: AMPHOTERICIN B
     Indication: ANTIFUNGAL PROPHYLAXIS
     Dosage: 1 DF
     Route: 048
     Dates: end: 19981122
  38. AFRIN [OXYMETAZOLINE HYDROCHLORIDE] [Concomitant]
     Dosage: UNK
     Route: 045
     Dates: start: 19981113
  39. REMERGIL [Suspect]
     Active Substance: MIRTAZAPINE
     Indication: DEPRESSION
     Dosage: 15 MG, QD
     Route: 048
     Dates: start: 19981126, end: 19981203
  40. ZIENAM [Suspect]
     Active Substance: CILASTATIN SODIUM\IMIPENEM
     Indication: INFECTION
     Dosage: 500 MG, BID
     Route: 042
     Dates: start: 19981120, end: 19990101
  41. TAVOR (LORAZEPAM) [Suspect]
     Active Substance: LORAZEPAM
     Indication: SEDATION
     Dosage: 1 MG, BID
     Route: 042
     Dates: end: 19981125
  42. LASIX [Suspect]
     Active Substance: FUROSEMIDE
     Dosage: 40 MG, QD
     Route: 042
     Dates: start: 19981126, end: 19981126
  43. CYMEVEN [GANCICLOVIR] [Suspect]
     Active Substance: GANCICLOVIR
     Indication: OEDEMA
     Dosage: 225 MG, QD
     Dates: start: 19981127, end: 19990101
  44. VOMEX A [Suspect]
     Active Substance: DIMENHYDRINATE
     Indication: NAUSEA
     Dosage: 1 DF, QD
     Route: 042
     Dates: start: 19981118, end: 19981130
  45. MAGNESIUM VERLA [MAGNESIUM] [Concomitant]
     Indication: BLOOD MAGNESIUM DECREASED
     Dosage: INTERMITENT THERAPY
     Route: 042
     Dates: start: 19981111, end: 19981202
  46. PENTAGLOBIN [Concomitant]
     Active Substance: HUMAN IMMUNOGLOBULIN G
     Indication: BONE MARROW TRANSPLANT
     Dosage: 20 GRAM
     Dates: start: 19981115, end: 19981126
  47. KONAKION [Suspect]
     Active Substance: PHYTONADIONE
     Indication: COAGULOPATHY
     Dosage: 10 MG, QD
     Route: 042
     Dates: start: 19981207
  48. AMPHOTERICIN B. [Suspect]
     Active Substance: AMPHOTERICIN B
     Indication: FUNGAL INFECTION
     Dosage: 300 MG
     Route: 042
     Dates: start: 19981122, end: 19990101
  49. RESONIUM A [Suspect]
     Active Substance: SODIUM POLYSTYRENE SULFONATE
     Indication: HYPERKALAEMIA
     Dosage: 30 MG
     Route: 048
     Dates: start: 19981129, end: 19981129
  50. SANDIMMUN [Concomitant]
     Active Substance: CYCLOSPORINE
     Indication: BONE MARROW TRANSPLANT
     Dosage: UNK
     Route: 042
  51. CANDIO-HERMAL [Concomitant]
     Active Substance: NYSTATIN
     Indication: CANDIDA INFECTION
     Route: 061
  52. INTRALIPID [Concomitant]
     Active Substance: EGG PHOSPHOLIPIDS\GLYCERIN\SOYBEAN OIL
     Indication: PARENTERAL NUTRITION
     Dosage: UNK
     Route: 042
     Dates: end: 19981128
  53. ACC [ACETYLCYSTEINE] [Concomitant]
     Active Substance: ACETYLCYSTEINE
     Dosage: UNK
     Route: 042
     Dates: start: 19981117, end: 19981119
  54. GRANOCYTE [Concomitant]
     Active Substance: LENOGRASTIM
     Indication: BONE MARROW TRANSPLANT
     Route: 042
  55. CLONT [METRONIDAZOLE] [Concomitant]
     Indication: INFECTION
     Dosage: 500 MG
     Route: 042
  56. AMINO ACIDS NOS;MINERALS NOS [Concomitant]
     Indication: PARENTERAL NUTRITION
     Dosage: INTERMITTENT THERAPY
     Route: 042
     Dates: start: 19981013, end: 19981129
  57. VANCOMYCIN [Concomitant]
     Active Substance: VANCOMYCIN
     Indication: INFECTION
     Dosage: INTERMITTENT THERAPY
     Route: 042
  58. TARIVID [OFLOXACIN] [Concomitant]

REACTIONS (2)
  - Toxic epidermal necrolysis [Fatal]
  - Graft versus host disease [Fatal]

NARRATIVE: CASE EVENT DATE: 19981121
